FAERS Safety Report 8167843-2 (Version None)
Quarter: 2012Q1

REPORT INFORMATION
  Report Type: 
  Country: None (occurrence: None)
  Receive Date: 20120227
  Receipt Date: 20120216
  Transmission Date: 20120608
  Serious: Yes (Hospitalization)
  Sender: FDA-Public Use
  Company Number: IL-JNJFOC-20120210814

PATIENT
  Age: 68 Year
  Sex: Female

DRUGS (5)
  1. XARELTO [Suspect]
     Indication: HIP ARTHROPLASTY
     Route: 048
  2. XARELTO [Suspect]
     Route: 048
     Dates: start: 20120201, end: 20120201
  3. XARELTO [Suspect]
     Route: 048
     Dates: start: 20120201, end: 20120201
  4. XARELTO [Suspect]
     Indication: THROMBOSIS PROPHYLAXIS
     Route: 048
  5. ENOXAPARIN SODIUM [Concomitant]

REACTIONS (2)
  - PROCEDURAL HAEMORRHAGE [None]
  - RASH GENERALISED [None]
